FAERS Safety Report 7837628 (Version 2)
Quarter: 2021Q1

REPORT INFORMATION
  Report Type: Spontaneous
  Country: US (occurrence: US)
  Receive Date: 20110302
  Receipt Date: 20210224
  Transmission Date: 20210420
  Serious: No
  Sender: FDA-Public Use
  Company Number: US-PFIZER INC-2009252528

PATIENT
  Sex: Male
  Weight: 80.27 kg

DRUGS (3)
  1. DILANTIN [Suspect]
     Active Substance: PHENYTOIN
     Indication: EPILEPSY
     Dosage: 100 MG, 3X/DAY
     Route: 048
  2. ZONEGRAN [Concomitant]
     Active Substance: ZONISAMIDE
     Dosage: UNK
  3. AMOXICILLIN. [Interacting]
     Active Substance: AMOXICILLIN
     Indication: INFECTION
     Dosage: 500 MG, 1X/DAY

REACTIONS (2)
  - Drug interaction [Not Recovered/Not Resolved]
  - Anticonvulsant drug level increased [Not Recovered/Not Resolved]

NARRATIVE: CASE EVENT DATE: 20090804
